FAERS Safety Report 24971815 (Version 1)
Quarter: 2025Q1

REPORT INFORMATION
  Report Type: Spontaneous
  Country: KR (occurrence: KR)
  Receive Date: 20250214
  Receipt Date: 20250214
  Transmission Date: 20250408
  Serious: Yes (Other)
  Sender: PFIZER
  Company Number: KR-PFIZER INC-202500031706

PATIENT
  Age: 64 Year
  Sex: Female

DRUGS (1)
  1. CYTARABINE [Suspect]
     Active Substance: CYTARABINE
     Indication: Acute myeloid leukaemia
     Dates: start: 20231226

REACTIONS (3)
  - Gait disturbance [Recovered/Resolved]
  - Ataxia [Recovered/Resolved]
  - Tremor [Recovered/Resolved]

NARRATIVE: CASE EVENT DATE: 20231230
